FAERS Safety Report 21758269 (Version 1)
Quarter: 2022Q4

REPORT INFORMATION
  Report Type: Spontaneous
  Country: US (occurrence: None)
  Receive Date: 20221221
  Receipt Date: 20221221
  Transmission Date: 20230112
  Serious: No
  Sender: FDA-Public Use
  Company Number: 2022A401420

PATIENT
  Sex: Female

DRUGS (1)
  1. FASENRA [Suspect]
     Active Substance: BENRALIZUMAB
     Dosage: 1 DOSE.
     Route: 058
     Dates: start: 202211

REACTIONS (6)
  - Dyspnoea [Not Recovered/Not Resolved]
  - Incorrect dose administered by device [Unknown]
  - COVID-19 [Unknown]
  - Cerebral disorder [Not Recovered/Not Resolved]
  - Illness [Unknown]
  - Device leakage [Unknown]
